FAERS Safety Report 24234352 (Version 2)
Quarter: 2024Q3

REPORT INFORMATION
  Report Type: Report from Study
  Country: CA (occurrence: None)
  Receive Date: 20240821
  Receipt Date: 20240918
  Transmission Date: 20241016
  Serious: Yes (Other)
  Sender: ASTRAZENECA
  Company Number: 2024A185656

PATIENT
  Sex: Female

DRUGS (8)
  1. FASENRA [Suspect]
     Active Substance: BENRALIZUMAB
     Indication: Asthma
     Dosage: 30.0MG UNKNOWN
     Route: 058
     Dates: start: 20201208
  2. INCRUSE ELLIPTA [Concomitant]
     Active Substance: UMECLIDINIUM BROMIDE
     Dosage: 1 PUFF DAILY
  3. SYMBICORT [Concomitant]
     Active Substance: BUDESONIDE\FORMOTEROL FUMARATE DIHYDRATE
     Dosage: 200MCG 2 PUFFS QID
  4. LASIX [Concomitant]
     Active Substance: FUROSEMIDE
  5. TOPIRAMATE [Concomitant]
     Active Substance: TOPIRAMATE
  6. ESTROGENS [Concomitant]
     Active Substance: ESTROGENS
  7. OZEMPIC [Concomitant]
     Active Substance: SEMAGLUTIDE
  8. METFORMIN [Concomitant]
     Active Substance: METFORMIN HYDROCHLORIDE

REACTIONS (8)
  - Transient ischaemic attack [Unknown]
  - Ophthalmic migraine [Unknown]
  - Vitreous floaters [Recovered/Resolved]
  - Headache [Recovered/Resolved]
  - Plantar fasciitis [Unknown]
  - Fall [Unknown]
  - Blepharitis allergic [Unknown]
  - Eyelid oedema [Unknown]
